FAERS Safety Report 8039924-5 (Version None)
Quarter: 2012Q1

REPORT INFORMATION
  Report Type: 
  Country: None (occurrence: None)
  Receive Date: 20120111
  Receipt Date: 20111220
  Transmission Date: 20120608
  Serious: No
  Sender: FDA-Public Use
  Company Number: US-AMGEN-USASP2011067992

PATIENT
  Sex: Female

DRUGS (1)
  1. ENBREL [Suspect]
     Indication: RHEUMATOID ARTHRITIS
     Dosage: 25 MG, QWK
     Dates: start: 19990101, end: 20100101

REACTIONS (17)
  - EYE PAIN [None]
  - OCULAR HYPERAEMIA [None]
  - FALL [None]
  - MULTIPLE ALLERGIES [None]
  - INJECTION SITE DISCOLOURATION [None]
  - NASAL DRYNESS [None]
  - GASTROINTESTINAL MUCOSAL DISORDER [None]
  - NASAL CONGESTION [None]
  - PRURITUS GENERALISED [None]
  - CONVULSION [None]
  - TRISMUS [None]
  - PAIN IN JAW [None]
  - RHEUMATOID ARTHRITIS [None]
  - HYPOTONIA [None]
  - MENTAL DISORDER [None]
  - EYE IRRITATION [None]
  - HYPERSENSITIVITY [None]
